FAERS Safety Report 18391192 (Version 1)
Quarter: 2020Q4

REPORT INFORMATION
  Report Type: Spontaneous
  Country: US (occurrence: US)
  Receive Date: 20201016
  Receipt Date: 20201016
  Transmission Date: 20210114
  Serious: No
  Sender: FDA-Public Use
  Company Number: US-HIKMA PHARMACEUTICALS USA INC.-US-H14001-20-03294

PATIENT
  Age: 41 Year
  Sex: Female

DRUGS (1)
  1. PROMETHAZINE HYDROCHLORIDE. [Suspect]
     Active Substance: PROMETHAZINE HYDROCHLORIDE
     Indication: NAUSEA
     Route: 030
     Dates: start: 20200625

REACTIONS (3)
  - Administration site pain [Recovering/Resolving]
  - Administration site bruise [Unknown]
  - Administration site swelling [Unknown]

NARRATIVE: CASE EVENT DATE: 20200625
